FAERS Safety Report 4824333-X (Version None)
Quarter: 2005Q4

REPORT INFORMATION
  Report Type: 
  Country: None (occurrence: None)
  Receive Date: 20051108
  Receipt Date: 20051028
  Transmission Date: 20060501
  Serious: Yes (Other)
  Sender: FDA-Public Use
  Company Number: 2005149617

PATIENT
  Age: 37 Year
  Sex: Male

DRUGS (3)
  1. NELFINAVIR MESILATE (NELFINAVIR MESILATE) [Suspect]
     Indication: HIV INFECTION
  2. AMPRENAVIR (AMPRENAVIR) [Suspect]
     Indication: HIV INFECTION
  3. CO-PHENOTROPE (ATROPINE SULFATE, DIPHENOXYLATE HYDROCHLORIDE) [Concomitant]

REACTIONS (3)
  - BRADYCARDIA [None]
  - ELECTROCARDIOGRAM QT PROLONGED [None]
  - TORSADE DE POINTES [None]
